FAERS Safety Report 10243548 (Version 1)
Quarter: 2014Q2

REPORT INFORMATION
  Report Type: Spontaneous
  Country: US (occurrence: US)
  Receive Date: 20140618
  Receipt Date: 20140618
  Transmission Date: 20141212
  Serious: No
  Sender: FDA-Public Use
  Company Number: US-PFIZER INC-2014166489

PATIENT
  Age: 51 Year
  Sex: Female
  Weight: 54.42 kg

DRUGS (2)
  1. LYRICA [Suspect]
     Indication: BACK PAIN
     Dosage: 100 MG, DAILY
     Dates: start: 2013
  2. LYRICA [Suspect]
     Indication: BACK DISORDER

REACTIONS (1)
  - Amnesia [Not Recovered/Not Resolved]
